FAERS Safety Report 7202394-0 (Version None)
Quarter: 2010Q4

REPORT INFORMATION
  Report Type: 
  Country: None (occurrence: None)
  Receive Date: 20101229
  Receipt Date: 20101216
  Transmission Date: 20110411
  Serious: Yes (Hospitalization)
  Sender: FDA-Public Use
  Company Number: PHHY2010DK88497

PATIENT
  Sex: Male
  Weight: 52 kg

DRUGS (10)
  1. ISONIAZID [Suspect]
     Indication: TUBERCULOSIS
     Dosage: 300 MG, DAILY
     Route: 048
     Dates: start: 20101125, end: 20101209
  2. RIFAMPICIN [Suspect]
     Indication: TUBERCULOSIS
     Dosage: 600 MG, DAILY
     Route: 048
     Dates: start: 20101125, end: 20101209
  3. PYRAZINAMIDE [Suspect]
     Indication: TUBERCULOSIS
     Dosage: 2000 MG, DAILY
     Route: 048
     Dates: start: 20101125, end: 20101209
  4. MYAMBUTOL [Suspect]
     Indication: TUBERCULOSIS
     Dosage: 1200 MG, DAILY
     Route: 048
     Dates: start: 20101125, end: 20101209
  5. NOVOMIX FLEXPEN [Concomitant]
     Indication: DIABETES MELLITUS
     Dosage: UNK
     Dates: start: 20090101
  6. ENALAPRIL MALEATE [Concomitant]
     Indication: HYPERTENSION
     Dosage: 20 MG, UNK
     Route: 048
     Dates: start: 20090101
  7. FURIX [Concomitant]
     Indication: HYPERTENSION
     Dosage: 40 MG, UNK
     Route: 048
     Dates: start: 20090101
  8. SIMVASTATIN [Concomitant]
     Indication: HYPERCHOLESTEROLAEMIA
     Dosage: 40 MG, UNK
     Dates: start: 20090101
  9. PANTOLOC [Concomitant]
     Indication: DYSPEPSIA
     Dosage: 40 MG, UNK
     Route: 048
     Dates: start: 20090101
  10. UNIKALK FORTE [Concomitant]
     Dosage: 400 MG, UNK
     Dates: start: 20090101

REACTIONS (6)
  - DIZZINESS [None]
  - LIVER FUNCTION TEST ABNORMAL [None]
  - NAUSEA [None]
  - NEPHROPATHY [None]
  - RENAL FUNCTION TEST ABNORMAL [None]
  - VOMITING [None]
